FAERS Safety Report 16683858 (Version 2)
Quarter: 2019Q4

REPORT INFORMATION
  Report Type: Spontaneous
  Country: US (occurrence: US)
  Receive Date: 20190808
  Receipt Date: 20191218
  Transmission Date: 20200122
  Serious: Yes (Hospitalization, Other)
  Sender: FDA-Public Use
  Company Number: US-LUNDBECK-DKLU3002068

PATIENT
  Age: 68 Year
  Sex: Female
  Weight: 60 kg

DRUGS (1)
  1. NORTHERA [Suspect]
     Active Substance: DROXIDOPA
     Indication: AUTONOMIC NEUROPATHY
     Route: 048

REACTIONS (5)
  - Escherichia sepsis [Unknown]
  - Septic shock [Unknown]
  - Cerebrovascular accident [Unknown]
  - Eye excision [Unknown]
  - Speech disorder [Unknown]

NARRATIVE: CASE EVENT DATE: 20190801
